FAERS Safety Report 15780633 (Version 3)
Quarter: 2020Q4

REPORT INFORMATION
  Report Type: Spontaneous
  Country: JP (occurrence: JP)
  Receive Date: 20190102
  Receipt Date: 20201229
  Transmission Date: 20210113
  Serious: Yes (Death, Hospitalization, Other)
  Sender: FDA-Public Use
  Company Number: JP-BRISTOL-MYERS SQUIBB COMPANY-BMS-2018-093635

PATIENT
  Age: 69 Year
  Sex: Male

DRUGS (2)
  1. OPDIVO [Suspect]
     Active Substance: NIVOLUMAB
     Dosage: 192.6 MG, UNK
     Route: 041
     Dates: start: 20180109, end: 20180403
  2. OPDIVO [Suspect]
     Active Substance: NIVOLUMAB
     Indication: GASTRIC CANCER RECURRENT
     Dosage: 219.6 MG, UNK
     Route: 041
     Dates: start: 20171017, end: 20171212

REACTIONS (9)
  - Cholecystitis [Recovering/Resolving]
  - Septic shock [Recovering/Resolving]
  - Malignant neoplasm progression [Fatal]
  - Thyroid disorder [Not Recovered/Not Resolved]
  - Drug eruption [Recovering/Resolving]
  - Adrenal insufficiency [Recovering/Resolving]
  - Abdominal distension [Unknown]
  - Stomatitis [Unknown]
  - Weight decreased [Unknown]

NARRATIVE: CASE EVENT DATE: 20171114
